FAERS Safety Report 19060725 (Version 2)
Quarter: 2021Q4

REPORT INFORMATION
  Report Type: Spontaneous
  Country: NL (occurrence: NL)
  Receive Date: 20210326
  Receipt Date: 20211127
  Transmission Date: 20220303
  Serious: Yes (Hospitalization, Other)
  Sender: FDA-Public Use
  Company Number: NL-ALNYLAM PHARMACEUTICALS, INC.-ALN-2020-000609

PATIENT

DRUGS (30)
  1. AMLODIPINE [Suspect]
     Active Substance: AMLODIPINE BESYLATE
     Indication: Hypertension
     Dosage: 10 MILLIGRAM, UNK
     Route: 048
     Dates: start: 20191126
  2. LISINOPRIL [Suspect]
     Active Substance: LISINOPRIL
     Indication: Product used for unknown indication
     Dosage: 5 MILLIGRAM
     Route: 065
     Dates: start: 20201228
  3. PROMETHAZINE [Suspect]
     Active Substance: PROMETHAZINE HYDROCHLORIDE
     Indication: Cough
     Dosage: UNK
     Route: 065
  4. GIVLAARI [Suspect]
     Active Substance: GIVOSIRAN SODIUM
     Indication: Porphyria acute
     Dosage: 178.5 MILLIGRAM
     Route: 058
     Dates: start: 20200615
  5. GIVLAARI [Suspect]
     Active Substance: GIVOSIRAN SODIUM
     Dosage: 178.5 MILLIGRAM
     Route: 058
     Dates: start: 20200713
  6. GIVLAARI [Suspect]
     Active Substance: GIVOSIRAN SODIUM
     Dosage: 181.5 MILLIGRAM
     Route: 058
     Dates: start: 20201005
  7. GIVLAARI [Suspect]
     Active Substance: GIVOSIRAN SODIUM
     Dosage: 184 MILLIGRAM
     Route: 058
     Dates: start: 20201228
  8. GIVLAARI [Suspect]
     Active Substance: GIVOSIRAN SODIUM
     Dosage: 186.3 MILLIGRAM
     Route: 058
     Dates: start: 20210125
  9. GIVLAARI [Suspect]
     Active Substance: GIVOSIRAN SODIUM
     Dosage: 182 MILLIGRAM
     Route: 058
     Dates: start: 20210419, end: 20210419
  10. GIVLAARI [Suspect]
     Active Substance: GIVOSIRAN SODIUM
     Dosage: 179.5  MILLIGRAM
     Route: 058
     Dates: start: 20200323, end: 20200323
  11. GIVLAARI [Suspect]
     Active Substance: GIVOSIRAN SODIUM
     Dosage: 178.8 MILLIGRAM
     Route: 058
     Dates: start: 20210517
  12. GIVLAARI [Suspect]
     Active Substance: GIVOSIRAN SODIUM
     Dosage: 186.5 MILLIGRAM
     Route: 058
     Dates: start: 20210517
  13. GIVLAARI [Suspect]
     Active Substance: GIVOSIRAN SODIUM
     Dosage: 179.5  MILLIGRAM
     Route: 058
     Dates: start: 20200518, end: 20200518
  14. GIVLAARI [Suspect]
     Active Substance: GIVOSIRAN SODIUM
     Dosage: 175.25 MILLIGRAM
     Route: 058
     Dates: start: 20200420, end: 20200420
  15. GIVLAARI [Suspect]
     Active Substance: GIVOSIRAN SODIUM
     Dosage: 179.3 MILLIGRAM
     Route: 058
     Dates: start: 20200420, end: 20200420
  16. DEFERASIROX [Concomitant]
     Active Substance: DEFERASIROX
     Indication: Iron overload
     Dosage: 720 MILLIGRAM
     Route: 048
     Dates: start: 20191209, end: 20200709
  17. DEFERASIROX [Concomitant]
     Active Substance: DEFERASIROX
     Dosage: 360 MILLIGRAM
     Route: 048
     Dates: start: 20200709
  18. HYDROXYUREA [Concomitant]
     Active Substance: HYDROXYUREA
     Indication: Porphyria acute
     Dosage: 1500 MILLIGRAM
     Route: 048
     Dates: start: 20200723
  19. HYDROXYUREA [Concomitant]
     Active Substance: HYDROXYUREA
     Dosage: 1000 MILLIGRAM
     Route: 048
     Dates: start: 20191119, end: 20200723
  20. VITAMINS [Concomitant]
     Active Substance: VITAMINS
     Indication: Hypovitaminosis
     Dosage: 1000 MILLIGRAM
     Route: 048
     Dates: start: 20200204
  21. VITAMINS [Concomitant]
     Active Substance: VITAMINS
     Indication: Supplementation therapy
     Dosage: UNK
     Route: 065
  22. METOPROLOL [Concomitant]
     Active Substance: METOPROLOL
     Indication: Hypertension
     Dosage: 100 MILLIGRAM
     Route: 048
     Dates: start: 20200715
  23. METOPROLOL [Concomitant]
     Active Substance: METOPROLOL
     Dosage: 50 MILLIGRAM
     Route: 048
     Dates: start: 20191209, end: 20200715
  24. METOPROLOL [Concomitant]
     Active Substance: METOPROLOL
     Dosage: 100 MILLIGRAM
     Route: 048
     Dates: start: 20210111
  25. MOVICOL [Concomitant]
     Active Substance: POLYETHYLENE GLYCOL 3350\POTASSIUM CHLORIDE\SODIUM BICARBONATE\SODIUM CHLORIDE
     Indication: Constipation
     Dosage: 13.8 GRAM
     Route: 048
  26. OMEPRAZOLE [Concomitant]
     Active Substance: OMEPRAZOLE
     Indication: Reflux gastritis
     Dosage: 20 MILLIGRAM, TWO TIMES A DAY
     Route: 048
     Dates: start: 20210222
  27. OMEPRAZOLE [Concomitant]
     Active Substance: OMEPRAZOLE
     Dosage: 20 MILLIGRAM
     Route: 048
     Dates: start: 20200811, end: 20210222
  28. OMEPRAZOLE [Concomitant]
     Active Substance: OMEPRAZOLE
     Dosage: 20 MILLIGRAM
     Route: 048
     Dates: start: 20191106, end: 20200622
  29. OMEPRAZOLE [Concomitant]
     Active Substance: OMEPRAZOLE
     Dosage: 40 MILLIGRAM
     Route: 048
     Dates: start: 20200622, end: 20200811
  30. TERIPARATIDE [Concomitant]
     Active Substance: TERIPARATIDE
     Indication: Osteoporosis
     Dosage: 20 MICROGRAM, FOT THE 24 MONTHS
     Route: 065
     Dates: start: 202102

REACTIONS (33)
  - Abdominal pain [Not Recovered/Not Resolved]
  - Cough [Recovered/Resolved]
  - Ear pain [Recovered/Resolved]
  - Pain in extremity [Not Recovered/Not Resolved]
  - Somnolence [Recovered/Resolved]
  - Paraesthesia [Not Recovered/Not Resolved]
  - Fatigue [Recovered/Resolved]
  - Nausea [Recovered/Resolved]
  - Platelet count decreased [Recovered/Resolved]
  - Leukopenia [Recovered/Resolved]
  - Oedema peripheral [Recovered/Resolved]
  - Respiration abnormal [Not Recovered/Not Resolved]
  - Burning sensation [Recovered/Resolved]
  - Abdominal pain lower [Recovered/Resolved]
  - Dyspepsia [Recovered/Resolved]
  - Vomiting [Not Recovered/Not Resolved]
  - Pain in extremity [Recovered/Resolved]
  - Pain in jaw [Recovered/Resolved]
  - Injection site erythema [Recovered/Resolved]
  - Rash [Not Recovered/Not Resolved]
  - Malaise [Recovered/Resolved]
  - Injection site pain [Recovered/Resolved]
  - Renal failure [Recovered/Resolved]
  - Aspiration [Not Recovered/Not Resolved]
  - Influenza [Recovered/Resolved]
  - Respiration abnormal [Not Recovered/Not Resolved]
  - Urine delta aminolevulinate increased [Not Recovered/Not Resolved]
  - Anaemia [Recovered/Resolved]
  - Porphyria acute [Not Recovered/Not Resolved]
  - Blood potassium increased [Not Recovered/Not Resolved]
  - Mouth ulceration [Recovered/Resolved]
  - Arthralgia [Recovered/Resolved]
  - Oral pain [Recovered/Resolved]

NARRATIVE: CASE EVENT DATE: 20200323
